FAERS Safety Report 12910561 (Version 3)
Quarter: 2020Q3

REPORT INFORMATION
  Report Type: Spontaneous
  Country: US (occurrence: US)
  Receive Date: 20161104
  Receipt Date: 20200804
  Transmission Date: 20201102
  Serious: Yes (Death, Hospitalization)
  Sender: FDA-Public Use
  Company Number: US-JNJFOC-20161002052

PATIENT
  Age: 69 Year
  Sex: Male

DRUGS (1)
  1. XARELTO [Suspect]
     Active Substance: RIVAROXABAN
     Indication: PULMONARY EMBOLISM
     Route: 048
     Dates: start: 20140808, end: 20141224

REACTIONS (2)
  - Fall [Not Recovered/Not Resolved]
  - Haemothorax [Not Recovered/Not Resolved]

NARRATIVE: CASE EVENT DATE: 20141224
